FAERS Safety Report 6515948-1 (Version None)
Quarter: 2009Q4

REPORT INFORMATION
  Report Type: 
  Country: None (occurrence: None)
  Receive Date: 20091223
  Receipt Date: 20090311
  Transmission Date: 20100525
  Serious: No
  Sender: FDA-Public Use
  Company Number: US-ABBOTT-09P-163-0562232-00

PATIENT
  Sex: Male
  Weight: 76.272 kg

DRUGS (1)
  1. LUPRON DEPOT [Suspect]
     Indication: PROSTATE CANCER

REACTIONS (4)
  - DEPRESSION [None]
  - NERVOUSNESS [None]
  - RASH PRURITIC [None]
  - RESTLESSNESS [None]
